FAERS Safety Report 24124905 (Version 2)
Quarter: 2024Q3

REPORT INFORMATION
  Report Type: Report from Study
  Country: IR (occurrence: IR)
  Receive Date: 20240723
  Receipt Date: 20240725
  Transmission Date: 20241017
  Serious: Yes (Other)
  Sender: ROCHE
  Company Number: IR-ROCHE-10000028758

PATIENT

DRUGS (4)
  1. AVASTIN [Suspect]
     Active Substance: BEVACIZUMAB
     Indication: Retinal disorder
     Dosage: WAS INJECTED INTO THE EYE WITH A 30-GAUGE INSULIN NEEDLE SYRINGE.
     Route: 050
  2. TETRACAINE [Concomitant]
     Active Substance: TETRACAINE
     Indication: Local anaesthesia
  3. BETADINE [Concomitant]
     Active Substance: POVIDONE-IODINE
  4. CHLORAMPHENICOL [Concomitant]
     Active Substance: CHLORAMPHENICOL
     Route: 061

REACTIONS (3)
  - Endophthalmitis [Unknown]
  - Off label use [Unknown]
  - Off label use [Unknown]
